FAERS Safety Report 12526114 (Version 1)
Quarter: 2016Q3

REPORT INFORMATION
  Report Type: Spontaneous
  Country: US (occurrence: US)
  Receive Date: 20160705
  Receipt Date: 20160705
  Transmission Date: 20161109
  Serious: No
  Sender: FDA-Public Use
  Company Number: US-PFIZER INC-2016297668

PATIENT
  Sex: Female

DRUGS (5)
  1. MEVACOR [Suspect]
     Active Substance: LOVASTATIN
  2. LIPITOR [Suspect]
     Active Substance: ATORVASTATIN CALCIUM
     Dosage: UNK
  3. IODINE. [Suspect]
     Active Substance: IODINE
  4. LOVASTATIN. [Suspect]
     Active Substance: LOVASTATIN
  5. BETADINE [Suspect]
     Active Substance: POVIDONE-IODINE

REACTIONS (1)
  - Drug hypersensitivity [Unknown]
